FAERS Safety Report 11662372 (Version 7)
Quarter: 2021Q4

REPORT INFORMATION
  Report Type: Other
  Country: DE (occurrence: DE)
  Receive Date: 20151027
  Receipt Date: 20211011
  Transmission Date: 20220303
  Serious: Yes (Other)
  Sender: FDA-Public Use
  Company Number: DE-ROCHE-1650333

PATIENT

DRUGS (6)
  1. RITUXIMAB [Suspect]
     Active Substance: RITUXIMAB
     Indication: Diffuse large B-cell lymphoma
     Dosage: DAY 2
     Route: 041
  2. TEMSIROLIMUS [Suspect]
     Active Substance: TEMSIROLIMUS
     Indication: Diffuse large B-cell lymphoma
     Dosage: RECEIVED 25, 50, 75, OR 100 MG OF TEMSIROLIMUS ON DAY 1 AND DAY 8
     Route: 065
  3. DEXAMETHASONE [Suspect]
     Active Substance: DEXAMETHASONE
     Indication: Diffuse large B-cell lymphoma
     Dosage: DAY 3-6
     Route: 065
  4. CISPLATIN [Suspect]
     Active Substance: CISPLATIN
     Indication: Diffuse large B-cell lymphoma
     Dosage: DAY 3
     Route: 065
  5. CYTARABINE [Suspect]
     Active Substance: CYTARABINE
     Indication: Diffuse large B-cell lymphoma
     Dosage: 2 X 2 G/M2 ON DAY 4
     Route: 065
  6. CARBOPLATIN [Suspect]
     Active Substance: CARBOPLATIN
     Indication: Diffuse large B-cell lymphoma
     Route: 065

REACTIONS (59)
  - Leukopenia [Unknown]
  - Vascular device infection [Unknown]
  - Soft tissue infection [Unknown]
  - Oesophageal infection [Unknown]
  - Cystitis [Unknown]
  - Lymphopenia [Unknown]
  - Neutropenia [Unknown]
  - Renal failure [Unknown]
  - Anaemia [Unknown]
  - Mucosal inflammation [Unknown]
  - Thrombocytopenia [Unknown]
  - Febrile bone marrow aplasia [Unknown]
  - Febrile neutropenia [Unknown]
  - Granulocytopenia [Unknown]
  - Granulocytosis [Unknown]
  - Pancytopenia [Unknown]
  - Left ventricular dysfunction [Unknown]
  - Eye haemorrhage [Unknown]
  - Colitis [Unknown]
  - Melaena [Unknown]
  - Diarrhoea [Unknown]
  - Nausea [Unknown]
  - Stomatitis [Unknown]
  - Vomiting [Unknown]
  - Pyrexia [Unknown]
  - Bronchopulmonary aspergillosis [Unknown]
  - Cystitis [Unknown]
  - Device related infection [Unknown]
  - Gastroenteritis [Unknown]
  - Oesophageal candidiasis [Unknown]
  - Pneumonia [Unknown]
  - Pneumonia influenzal [Unknown]
  - Sepsis [Unknown]
  - Neutropenic sepsis [Unknown]
  - Alanine aminotransferase increased [Unknown]
  - Aspartate aminotransferase increased [Unknown]
  - Blood cholesterol increased [Unknown]
  - Blood lactate dehydrogenase increased [Unknown]
  - Blood urea increased [Unknown]
  - C-reactive protein increased [Unknown]
  - Eastern Cooperative Oncology Group performance status worsened [Unknown]
  - Gamma-glutamyltransferase increased [Unknown]
  - Glomerular filtration rate decreased [Unknown]
  - Lymphocyte count decreased [Unknown]
  - Neutrophil count decreased [Unknown]
  - Platelet count decreased [Unknown]
  - White blood cell count decreased [Unknown]
  - Dehydration [Unknown]
  - Hypertriglyceridaemia [Unknown]
  - Hypocalcaemia [Unknown]
  - Hypokalaemia [Unknown]
  - Tumour lysis syndrome [Unknown]
  - Back pain [Unknown]
  - Epistaxis [Unknown]
  - Alopecia [Unknown]
  - Angioedema [Unknown]
  - Brachiocephalic vein thrombosis [Unknown]
  - Hypertension [Unknown]
  - Jugular vein thrombosis [Unknown]
